FAERS Safety Report 6907772-2 (Version None)
Quarter: 2010Q3

REPORT INFORMATION
  Report Type: 
  Country: None (occurrence: None)
  Receive Date: 20100805
  Receipt Date: 20100726
  Transmission Date: 20110219
  Serious: Yes (Hospitalization, Other)
  Sender: FDA-Public Use
  Company Number: JP-JNJFOC-20100607335

PATIENT
  Sex: Female
  Weight: 47 kg

DRUGS (21)
  1. GOLIMUMAB [Suspect]
     Indication: RHEUMATOID ARTHRITIS
     Route: 058
  2. GOLIMUMAB [Suspect]
     Route: 058
  3. GOLIMUMAB [Suspect]
     Route: 058
  4. CLINORIL [Concomitant]
     Indication: RHEUMATOID ARTHRITIS
     Route: 048
  5. CLINORIL [Concomitant]
     Route: 048
  6. PREDONINE [Concomitant]
     Indication: RHEUMATOID ARTHRITIS
     Route: 048
  7. PREDONINE [Concomitant]
     Route: 048
  8. ULCERLMIN [Concomitant]
     Indication: PROPHYLAXIS AGAINST GASTROINTESTINAL ULCER
     Route: 048
  9. ULCERLMIN [Concomitant]
     Route: 048
  10. ALFAROL [Concomitant]
     Indication: OSTEOPOROSIS
     Route: 048
  11. ALFAROL [Concomitant]
     Route: 048
  12. HERBESSER R [Concomitant]
     Indication: HYPERTENSION
     Route: 048
  13. HERBESSER R [Concomitant]
     Route: 048
  14. BLOPRESS [Concomitant]
     Indication: HYPERTENSION
     Route: 048
  15. BLOPRESS [Concomitant]
     Route: 048
  16. ACEMAIL [Concomitant]
     Indication: HYPERTENSION
     Route: 048
  17. ACEMAIL [Concomitant]
     Route: 048
  18. ATELEC [Concomitant]
     Indication: HYPERTENSION
     Route: 048
  19. ATELEC [Concomitant]
     Route: 048
  20. OFLOXACIN [Concomitant]
     Indication: CORNEAL EROSION
     Route: 003
  21. OFLOXACIN [Concomitant]
     Route: 003

REACTIONS (2)
  - LIVER ABSCESS [None]
  - SEPSIS [None]
